FAERS Safety Report 4307428-9 (Version None)
Quarter: 2004Q1

REPORT INFORMATION
  Report Type: 
  Country: None (occurrence: None)
  Receive Date: 20040226
  Receipt Date: 20040212
  Transmission Date: 20041129
  Serious: Yes (Death)
  Sender: FDA-Public Use
  Company Number: 2004002702

PATIENT
  Age: 17 Year
  Sex: Male
  Weight: 41 kg

DRUGS (2)
  1. NEURONTIN [Suspect]
     Indication: POST HERPETIC NEURALGIA
     Dosage: ORAL
     Route: 048
  2. AMITRIPTYLINE HCL [Concomitant]

REACTIONS (2)
  - AMNESIA [None]
  - VIRAL INFECTION [None]
